FAERS Safety Report 9819403 (Version 1)
Quarter: 2014Q1

REPORT INFORMATION
  Report Type: Spontaneous
  Country: AU (occurrence: None)
  Receive Date: 20140113
  Receipt Date: 20140113
  Transmission Date: 20141002
  Serious: Yes (Other)
  Sender: FDA-Public Use
  Company Number: 2013000403

PATIENT
  Sex: Male

DRUGS (2)
  1. ACEON [Suspect]
     Indication: PRODUCT USED FOR UNKNOWN INDICATION
  2. NOTEN (ATENOLOL) [Concomitant]

REACTIONS (4)
  - Coma [None]
  - Syncope [None]
  - Fatigue [None]
  - Dizziness [None]
